FAERS Safety Report 4986819-7 (Version None)
Quarter: 2006Q2

REPORT INFORMATION
  Report Type: 
  Country: None (occurrence: None)
  Receive Date: 20060428
  Receipt Date: 20060227
  Transmission Date: 20061013
  Serious: Yes (Death, Hospitalization)
  Sender: FDA-Public Use
  Company Number: DK-MERCK-0603DNK00006

PATIENT
  Age: 63 Year
  Sex: Female
  Weight: 73 kg

DRUGS (1)
  1. VIOXX [Suspect]
     Route: 048
     Dates: start: 19991101, end: 20040812

REACTIONS (2)
  - DEEP VEIN THROMBOSIS [None]
  - PULMONARY ARTERY THROMBOSIS [None]
